FAERS Safety Report 6598676-6 (Version None)
Quarter: 2010Q1

REPORT INFORMATION
  Report Type: 
  Country: None (occurrence: None)
  Receive Date: 20100224
  Receipt Date: 20100217
  Transmission Date: 20100710
  Serious: Yes (Death)
  Sender: FDA-Public Use
  Company Number: US-BAYER-201016578GPV

PATIENT

DRUGS (10)
  1. FLUDARABINE [Suspect]
     Indication: STEM CELL TRANSPLANT
     Dosage: TOTAL DAILY DOSE: 30 MG/M2
  2. CYCLOSPORINE [Suspect]
     Indication: IMMUNOSUPPRESSION
     Dosage: TOTAL DAILY DOSE: 10 MG/KG
     Route: 048
  3. MYCOPHENOLATE MOFETIL [Suspect]
     Indication: IMMUNOSUPPRESSION
     Dosage: TOTAL DAILY DOSE: 45 MG/KG
     Route: 048
  4. MYCOPHENOLATE MOFETIL [Suspect]
     Dosage: TAPERED AT A RATE OF APPROXIMATELY 11% PER WEEK
     Route: 048
  5. ANTIBIOTICS [Concomitant]
     Indication: INFECTION PROPHYLAXIS
     Dosage: THIRD-GENERATION CEPHALOSPORIN OR QUINOLONE WHEN ANC{500/MCL
  6. FLUCONAZOLE [Concomitant]
     Indication: ANTIFUNGAL PROPHYLAXIS
     Dosage: FROM DAY -4 TO AT LEAST DAY +75
  7. TRIMETHOPRIM + SULFAMETHOXAZOLE [Concomitant]
     Indication: ANTIFUNGAL PROPHYLAXIS
     Dosage: TOTAL DAILY DOSE: 100 MG
  8. DAPSONE [Concomitant]
     Indication: ANTIFUNGAL PROPHYLAXIS
     Dosage: UNTIL DAY +180
  9. ACYCLOVIR [Concomitant]
     Indication: ANTIVIRAL PROPHYLAXIS
     Route: 042
  10. ACYCLOVIR [Concomitant]
     Dosage: OR VALACYCLOVIR 500 MG ORALLY BID, UNTIL 1 YEAR AFTER HSCT
     Route: 048

REACTIONS (1)
  - OBLITERATIVE BRONCHIOLITIS [None]
